FAERS Safety Report 7485046-1 (Version None)
Quarter: 2011Q2

REPORT INFORMATION
  Report Type: 
  Country: None (occurrence: None)
  Receive Date: 20110517
  Receipt Date: 20110506
  Transmission Date: 20111010
  Serious: Yes (Other)
  Sender: FDA-Public Use
  Company Number: US-PERRIGO-11US003775

PATIENT
  Sex: Male
  Weight: 13.605 kg

DRUGS (1)
  1. ACETAMINOPHEN [Suspect]
     Indication: PRODUCT USED FOR UNKNOWN INDICATION
     Dosage: UNKNOWN AMOUNT, ONCE
     Route: 048
     Dates: start: 20110303, end: 20110303

REACTIONS (2)
  - ANALGESIC DRUG LEVEL INCREASED [None]
  - ACCIDENTAL OVERDOSE [None]
